FAERS Safety Report 5320442-X (Version None)
Quarter: 2007Q2

REPORT INFORMATION
  Report Type: 
  Country: None (occurrence: None)
  Receive Date: 20070509
  Receipt Date: 20070427
  Transmission Date: 20071010
  Serious: Yes (Other)
  Sender: FDA-Public Use
  Company Number: GB-SANOFI-SYNTHELABO-A01200702758

PATIENT
  Age: 65 Year
  Sex: Female

DRUGS (4)
  1. OTHER MEDICATIONS NOS [Concomitant]
     Dosage: UNK
     Route: 065
  2. PLAQUENIL [Suspect]
     Indication: SYSTEMIC LUPUS ERYTHEMATOSUS
     Route: 048
  3. PLAQUENIL [Suspect]
     Route: 048
  4. NON STEROIDALS ANTI INFLAMMATORY (NOS) [Concomitant]
     Dosage: UNK
     Route: 065

REACTIONS (1)
  - SUBARACHNOID HAEMORRHAGE [None]
